FAERS Safety Report 5027956-0 (Version None)
Quarter: 2006Q2

REPORT INFORMATION
  Report Type: 
  Country: None (occurrence: None)
  Receive Date: 20060609
  Receipt Date: 20060531
  Transmission Date: 20061013
  Serious: Yes (Hospitalization)
  Sender: FDA-Public Use
  Company Number: TAP2006Q00971

PATIENT
  Age: 67 Year
  Sex: Male
  Weight: 91 kg

DRUGS (4)
  1. PREVACID [Suspect]
     Indication: GASTROOESOPHAGEAL REFLUX DISEASE
     Dosage: 30 MG, AS REQUIRED, PER ORAL
     Route: 048
     Dates: start: 20050401, end: 20050901
  2. LIPITOR [Concomitant]
  3. MONOPRIL-HCT (ELIDIUR) [Concomitant]
  4. ASPIRIN [Concomitant]

REACTIONS (13)
  - BACK PAIN [None]
  - BLOOD CREATININE INCREASED [None]
  - CHILLS [None]
  - COUGH [None]
  - DIVERTICULUM INTESTINAL [None]
  - FAECES DISCOLOURED [None]
  - HAEMANGIOMA OF LIVER [None]
  - HEADACHE [None]
  - PYREXIA [None]
  - RENAL CYST [None]
  - SERUM SICKNESS [None]
  - THERAPY NON-RESPONDER [None]
  - VOMITING [None]
